FAERS Safety Report 9338344 (Version 2)
Quarter: 2013Q3

REPORT INFORMATION
  Report Type: Spontaneous
  Country: US (occurrence: US)
  Receive Date: 20130610
  Receipt Date: 20130909
  Transmission Date: 20140515
  Serious: No
  Sender: FDA-Public Use
  Company Number: US-PFIZER INC-2013171575

PATIENT
  Age: 60 Year
  Sex: Female

DRUGS (18)
  1. XELJANZ [Suspect]
     Dosage: 5 MG, 2X/DAY (TAKE 1 TABLET BY MOUTH TWICE A DAY)
     Route: 048
  2. TRIAMT/HCT [Concomitant]
     Dosage: 37.5-25, UNK
  3. SERTRALINE [Concomitant]
     Dosage: 50 MG, UNK
  4. PREDNISONE [Concomitant]
     Dosage: 5 MG, UNK
  5. LEUCOVORIN [Concomitant]
     Dosage: UNK
  6. CALCIUM [Concomitant]
     Dosage: UNK
  7. PLAQUENIL [Concomitant]
     Dosage: 200 MG, UNK
  8. VOLTAREN [Concomitant]
     Dosage: UNK
  9. CALCIUM WITH VITAMIN D [Concomitant]
     Dosage: UNK
  10. METHOTREXATE [Concomitant]
     Dosage: 2.5 MG, UNK
  11. FOLIC ACID [Concomitant]
     Dosage: UNK
  12. VITAMIN A [Concomitant]
     Dosage: UNK
  13. VITAMIN B COMPLEX [Concomitant]
     Dosage: UNK
  14. VITAMIN C [Concomitant]
     Dosage: 500 MG, UNK
  15. VITAMIN D [Concomitant]
     Dosage: 1000 UNIT, UNK
  16. IRON [Concomitant]
     Dosage: UNK
  17. MAGNESIUM [Concomitant]
     Dosage: 300 MG, UNK
  18. FISH OIL [Concomitant]
     Dosage: UNK

REACTIONS (3)
  - Headache [Unknown]
  - Diarrhoea [Unknown]
  - Abdominal pain upper [Unknown]
